FAERS Safety Report 25134403 (Version 2)
Quarter: 2025Q4

REPORT INFORMATION
  Report Type: Spontaneous
  Country: EU (occurrence: EU)
  Receive Date: 20250328
  Receipt Date: 20251119
  Transmission Date: 20260117
  Serious: Yes (Hospitalization, Other)
  Sender: AUROBINDO
  Company Number: EU-ABBVIE-6169859

PATIENT
  Age: 75 Year
  Sex: Male

DRUGS (19)
  1. AZACITIDINE [Suspect]
     Active Substance: AZACITIDINE
     Indication: Acute myeloid leukaemia
     Dosage: 75 MILLIGRAM/SQ. METER, ONCE A DAY
     Route: 065
     Dates: start: 20241210, end: 20241217
  2. AZACITIDINE [Suspect]
     Active Substance: AZACITIDINE
     Dosage: 75 MILLIGRAM/SQ. METER, ONCE A DAY
     Route: 065
     Dates: start: 20241105, end: 20241105
  3. AZACITIDINE [Suspect]
     Active Substance: AZACITIDINE
     Dosage: 75 MILLIGRAM/SQ. METER, ONCE A DAY
     Route: 065
     Dates: start: 20241028, end: 20241031
  4. AZACITIDINE [Suspect]
     Active Substance: AZACITIDINE
     Dosage: 75 MILLIGRAM/SQ. METER, ONCE A DAY
     Route: 065
     Dates: start: 20240916, end: 20240922
  5. VENETOCLAX [Suspect]
     Active Substance: VENETOCLAX
     Indication: Acute myeloid leukaemia
     Dosage: 400 MILLIGRAM
     Dates: start: 20241210, end: 20241220
  6. VENETOCLAX [Suspect]
     Active Substance: VENETOCLAX
     Dosage: 20 MILLIGRAM
     Dates: start: 20240917, end: 20240917
  7. VENETOCLAX [Suspect]
     Active Substance: VENETOCLAX
     Dosage: 70 MILLIGRAM
     Dates: start: 20240919, end: 20241014
  8. VENETOCLAX [Suspect]
     Active Substance: VENETOCLAX
     Dosage: 50 MILLIGRAM
     Dates: start: 20240918, end: 20240918
  9. VENETOCLAX [Suspect]
     Active Substance: VENETOCLAX
     Dosage: 10 MILLIGRAM (RAMP- UP DOSE)
     Dates: start: 20240916, end: 20240916
  10. VENETOCLAX [Suspect]
     Active Substance: VENETOCLAX
     Dosage: 400 MILLIGRAM
     Dates: start: 20241028, end: 20241127
  11. VENETOCLAX [Suspect]
     Active Substance: VENETOCLAX
     Dosage: UNK (END OF CYCLE(28 DAYS)DOSE: 0 MG)
     Dates: start: 20241221, end: 20250106
  12. ALLOPURINOL [Concomitant]
     Active Substance: ALLOPURINOL
     Indication: Prophylaxis
     Dosage: 300 MILLIGRAM, ONCE A DAY
     Dates: start: 202409, end: 202409
  13. ESOMEPRAZOLE [Concomitant]
     Active Substance: ESOMEPRAZOLE
     Indication: Chronic gastritis
     Dosage: 20 MILLIGRAM, TWO TIMES A DAY
     Dates: start: 2023
  14. POSACONAZOLE [Concomitant]
     Active Substance: POSACONAZOLE
     Indication: Prophylaxis
     Dosage: 300 MILLIGRAM, ONCE A DAY
     Dates: start: 202409, end: 20241028
  15. COVID-19 vaccine [Concomitant]
     Indication: COVID-19 immunisation
     Dosage: UNK (DOSE 1)
  16. COVID-19 vaccine [Concomitant]
     Dosage: UNK (DOSE 2)
  17. COVID-19 vaccine [Concomitant]
     Dosage: UNK (DOSE 3)
  18. COVID-19 vaccine [Concomitant]
     Dosage: UNK (DOSE 4)
  19. OXATOMIDE [Concomitant]
     Active Substance: OXATOMIDE
     Indication: Skin disorder prophylaxis
     Dosage: 30 MILLIGRAM, AS NECESSARY
     Dates: start: 20250120

REACTIONS (5)
  - Urinary tract infection enterococcal [Recovered/Resolved]
  - Neutropenia [Recovered/Resolved]
  - Syncope [Recovered/Resolved]
  - Thrombocytopenia [Recovered/Resolved]
  - COVID-19 [Recovered/Resolved]

NARRATIVE: CASE EVENT DATE: 20241014
